FAERS Safety Report 9099462 (Version 4)
Quarter: 2013Q1

REPORT INFORMATION
  Report Type: Spontaneous
  Country: US (occurrence: US)
  Receive Date: 20130214
  Receipt Date: 20130322
  Transmission Date: 20140127
  Serious: Yes (Other)
  Sender: FDA-Public Use
  Company Number: US-JNJFOC-20130202935

PATIENT
  Age: 66 Year
  Sex: Male
  Weight: 84.37 kg

DRUGS (3)
  1. XARELTO [Suspect]
     Indication: THROMBOSIS PROPHYLAXIS
     Route: 048
     Dates: start: 20130122, end: 20130124
  2. XARELTO [Suspect]
     Indication: KNEE OPERATION
     Route: 048
     Dates: start: 20130122, end: 20130124
  3. PLAVIX [Concomitant]
     Indication: ANTIPLATELET THERAPY
     Route: 065

REACTIONS (1)
  - Haemarthrosis [Recovering/Resolving]
